FAERS Safety Report 8582182-3 (Version None)
Quarter: 2012Q3

REPORT INFORMATION
  Report Type: 
  Country: None (occurrence: None)
  Receive Date: 20120809
  Receipt Date: 20120802
  Transmission Date: 20120928
  Serious: Yes (Hospitalization)
  Sender: FDA-Public Use
  Company Number: US-VERTEX PHARMACEUTICALS INC.-AE-2012-009467

PATIENT
  Sex: Female
  Weight: 90.72 kg

DRUGS (6)
  1. PEG-INTRON [Concomitant]
     Indication: HEPATITIS C
     Route: 058
     Dates: start: 20120604, end: 20120723
  2. INCIVEK [Suspect]
     Indication: HEPATITIS C
     Route: 048
     Dates: start: 20120604, end: 20120723
  3. RIBAVIRIN [Concomitant]
     Indication: HEPATITIS C
     Route: 048
     Dates: start: 20120604, end: 20120723
  4. OXYCONTIN [Concomitant]
     Indication: PAIN
     Route: 048
  5. HEARTBURN PILL [Concomitant]
     Indication: DYSPEPSIA
  6. EFFEXOR [Concomitant]
     Indication: DEPRESSION
     Route: 048

REACTIONS (13)
  - SEPSIS [None]
  - KIDNEY INFECTION [None]
  - BLOOD URIC ACID INCREASED [None]
  - INFLUENZA LIKE ILLNESS [None]
  - STENT PLACEMENT [None]
  - DIARRHOEA [None]
  - VOMITING [None]
  - NEPHROLITHIASIS [None]
  - ANORECTAL DISCOMFORT [None]
  - CHEST PAIN [None]
  - BLOOD URINE PRESENT [None]
  - NAUSEA [None]
  - CHILLS [None]
